FAERS Safety Report 13292754 (Version 2)
Quarter: 2017Q1

REPORT INFORMATION
  Report Type: Spontaneous
  Country: PL (occurrence: PL)
  Receive Date: 20170303
  Receipt Date: 20170317
  Transmission Date: 20170428
  Serious: Yes (Hospitalization)
  Sender: FDA-Public Use
  Company Number: PL-LANNETT COMPANY, INC.-PL-2017LAN000610

PATIENT
  Age: 60 Year
  Sex: Male

DRUGS (2)
  1. FENTANYL. [Concomitant]
     Active Substance: FENTANYL
     Indication: ANAESTHESIA
     Dosage: UNK
  2. DIAZEPAM. [Suspect]
     Active Substance: DIAZEPAM
     Indication: ANAESTHESIA
     Dosage: UNK

REACTIONS (3)
  - Injection site erythema [Unknown]
  - Injection site vesicles [Unknown]
  - Anaphylactic shock [Unknown]
